FAERS Safety Report 22298414 (Version 1)
Quarter: 2023Q2

REPORT INFORMATION
  Report Type: Spontaneous
  Country: US (occurrence: None)
  Receive Date: 20230507
  Receipt Date: 20230507
  Transmission Date: 20230722
  Serious: Yes (Hospitalization)
  Sender: FDA-Public Use
  Company Number: None

PATIENT
  Sex: Female
  Weight: 80.29 kg

DRUGS (3)
  1. WELIREG [Suspect]
     Active Substance: BELZUTIFAN
     Indication: Renal cancer
     Dosage: FREQUENCY : DAILY;?
     Route: 048
  2. BASAGLAR [Concomitant]
     Active Substance: INSULIN GLARGINE
  3. GLIPIZIDE [Concomitant]
     Active Substance: GLIPIZIDE

REACTIONS (2)
  - Asthenia [None]
  - Therapy interrupted [None]
